FAERS Safety Report 4548439-8 (Version None)
Quarter: 2005Q1

REPORT INFORMATION
  Report Type: 
  Country: None (occurrence: None)
  Receive Date: 20050106
  Receipt Date: 20050106
  Transmission Date: 20050727
  Serious: No
  Sender: FDA-Public Use
  Company Number: None

PATIENT
  Age: 69 Year
  Sex: Male

DRUGS (1)
  1. METOPROLOL 100MG TAB [Suspect]
     Indication: HYPERTENSION
     Dosage: 1 TAB PO BID
     Route: 048
     Dates: start: 20041022

REACTIONS (1)
  - STOMACH DISCOMFORT [None]
